FAERS Safety Report 9227962 (Version 1)
Quarter: 2013Q2

REPORT INFORMATION
  Report Type: Spontaneous
  Country: US (occurrence: None)
  Receive Date: 20130411
  Receipt Date: 20130411
  Transmission Date: 20140414
  Serious: No
  Sender: FDA-Public Use
  Company Number: None

PATIENT
  Age: 30 Year
  Sex: Male

DRUGS (2)
  1. FENOFIBRATE [Suspect]
     Dosage: 145MG AT BEDTIME PO
     Route: 048
  2. QUETIAPINE [Suspect]
     Dosage: 400MG AT BEDTIME PO
     Route: 048

REACTIONS (2)
  - Aspartate aminotransferase increased [None]
  - Blood creatine phosphokinase increased [None]
